FAERS Safety Report 15464891 (Version 3)
Quarter: 2018Q4

REPORT INFORMATION
  Report Type: Report from Study
  Country: US (occurrence: US)
  Receive Date: 20181004
  Receipt Date: 20181024
  Transmission Date: 20190204
  Serious: Yes (Other)
  Sender: FDA-Public Use
  Company Number: US-ROCHE-1563637

PATIENT
  Age: 1 Year
  Sex: Female
  Weight: 9.2 kg

DRUGS (7)
  1. BENADRYL [Concomitant]
     Active Substance: DIPHENHYDRAMINE HYDROCHLORIDE
     Route: 065
     Dates: start: 20150415, end: 20150415
  2. TOCILIZUMAB. [Suspect]
     Active Substance: TOCILIZUMAB
     Indication: STILL^S DISEASE
     Dosage: LAST DOSE PRIOR TO SAE (FIRST EPISODE OF NEUTROPENIA): 18/MAR/2015?LAST DOSE PRIOR TO SAE (SECOND EP
     Route: 042
     Dates: start: 20150301
  3. TYLENOL [Concomitant]
     Active Substance: ACETAMINOPHEN
     Route: 065
     Dates: start: 20150401, end: 20150401
  4. PREDNISOLONE. [Concomitant]
     Active Substance: PREDNISOLONE
     Route: 065
     Dates: start: 20141126, end: 20150401
  5. IBUPROFEN. [Concomitant]
     Active Substance: IBUPROFEN
     Route: 065
     Dates: start: 20150416
  6. BENADRYL [Concomitant]
     Active Substance: DIPHENHYDRAMINE HYDROCHLORIDE
     Route: 065
     Dates: start: 20150401, end: 20150401
  7. TYLENOL [Concomitant]
     Active Substance: ACETAMINOPHEN
     Route: 065
     Dates: start: 20150415, end: 20150415

REACTIONS (4)
  - Thrombocytopenia [Recovered/Resolved]
  - Neutropenia [Recovered/Resolved]
  - Pulmonary arterial hypertension [Unknown]
  - Computerised tomogram thorax abnormal [Unknown]

NARRATIVE: CASE EVENT DATE: 20150401
